FAERS Safety Report 19595267 (Version 2)
Quarter: 2021Q3

REPORT INFORMATION
  Report Type: Spontaneous
  Country: PT (occurrence: PT)
  Receive Date: 20210722
  Receipt Date: 20210729
  Transmission Date: 20211014
  Serious: Yes (Death, Hospitalization, Other)
  Sender: FDA-Public Use
  Company Number: PT-TEVA-2021-PT-1933353

PATIENT
  Age: 40 Year
  Sex: Male

DRUGS (1)
  1. SULFAMETHOXAZOLE W/TRIMETHOPRIM [Suspect]
     Active Substance: SULFAMETHOXAZOLE\TRIMETHOPRIM
     Route: 048

REACTIONS (1)
  - Treatment failure [Fatal]
